FAERS Safety Report 9580643 (Version 3)
Quarter: 2013Q4

REPORT INFORMATION
  Report Type: Report from Study
  Country: BE (occurrence: BE)
  Receive Date: 20131002
  Receipt Date: 20131007
  Transmission Date: 20140711
  Serious: Yes (Life-Threatening, Hospitalization)
  Sender: FDA-Public Use
  Company Number: BE-SA-CLOF-1002453

PATIENT
  Age: 60 Year
  Sex: Male
  Weight: 79 kg

DRUGS (14)
  1. CLOFARABINE [Suspect]
     Indication: ACUTE MYELOID LEUKAEMIA
     Dosage: INDUCTION I (DAY 1, 2, 3, 4, 5)
     Route: 042
     Dates: start: 20121204, end: 20121208
  2. CLOFARABINE [Suspect]
     Indication: ACUTE MYELOID LEUKAEMIA
     Dosage: INDUCTION I (DAY 1, 2, 3, 4, 5)
     Route: 042
     Dates: start: 20121204, end: 20121208
  3. CLOFARABINE [Suspect]
     Indication: ACUTE MYELOID LEUKAEMIA
     Dosage: INDUCTION II  (DAY 1, 2, 3, 4, 5)
     Route: 042
     Dates: start: 20130109, end: 20130113
  4. IDARUBICIN [Suspect]
     Indication: ACUTE MYELOID LEUKAEMIA
     Dosage: INDUCTION I
     Route: 042
     Dates: start: 20121204
  5. IDARUBICIN [Suspect]
     Indication: ACUTE MYELOID LEUKAEMIA
  6. CYTARABINE [Suspect]
     Indication: ACUTE MYELOID LEUKAEMIA
     Dosage: INDUCTION I
     Route: 042
     Dates: start: 20121204
  7. CYTARABINE [Suspect]
     Indication: ACUTE MYELOID LEUKAEMIA
     Dosage: INDUCTION II
     Route: 042
     Dates: start: 20130109
  8. AMSACRINE [Suspect]
     Indication: ACUTE MYELOID LEUKAEMIA
     Dosage: INDUCTION II
     Route: 042
     Dates: start: 20130112
  9. PANTOMED [Concomitant]
     Indication: PROPHYLAXIS AGAINST GASTROINTESTINAL ULCER
     Dosage: 20 MG, UNK
     Route: 048
     Dates: start: 20121204
  10. PANTOMED [Concomitant]
     Indication: PAIN PROPHYLAXIS
     Dosage: 20 MG, UNK
     Route: 048
     Dates: start: 20121204
  11. NADROPARIN CALCIUM [Concomitant]
     Indication: THROMBOSIS PROPHYLAXIS
     Dosage: 0.6 ML, UNK
     Route: 059
     Dates: start: 20121204
  12. VALPROIC ACID [Concomitant]
     Indication: EPILEPSY
     Dosage: UNK
     Route: 065
     Dates: start: 201212
  13. VFEND [Concomitant]
     Indication: ANTIFUNGAL PROPHYLAXIS
     Route: 048
  14. ASAFLOW [Concomitant]
     Indication: CARDIOVASCULAR EVENT PROPHYLAXIS
     Route: 048
     Dates: start: 20121204

REACTIONS (4)
  - Orthostatic hypotension [Not Recovered/Not Resolved]
  - Staphylococcal sepsis [Recovered/Resolved]
  - Pulmonary embolism [Not Recovered/Not Resolved]
  - Respiratory failure [Recovered/Resolved]
